FAERS Safety Report 14566021 (Version 1)
Quarter: 2018Q1

REPORT INFORMATION
  Report Type: Spontaneous
  Country: US (occurrence: US)
  Receive Date: 20180223
  Receipt Date: 20180223
  Transmission Date: 20180509
  Serious: No
  Sender: FDA-Public Use
  Company Number: US-B.I. PHARMACEUTICALS,INC./RIDGEFIELD-2018-BI-009261

PATIENT
  Sex: Female

DRUGS (2)
  1. SYNJARDY [Suspect]
     Active Substance: EMPAGLIFLOZIN\METFORMIN HYDROCHLORIDE
     Indication: TYPE 2 DIABETES MELLITUS
     Dosage: QD;  FORM STRENGTH: 12.5 MG / 1000 MG; FORMULATION: TABLET ACTION(S) TAKEN : DRUG WITHDRAWN
     Route: 048
     Dates: start: 2016, end: 2017
  2. OMEPRAZOLE. [Concomitant]
     Active Substance: OMEPRAZOLE
     Indication: PRODUCT USED FOR UNKNOWN INDICATION
     Dosage: QD;
     Route: 048

REACTIONS (2)
  - Fungal infection [Unknown]
  - Rash [Unknown]
